FAERS Safety Report 14095089 (Version 2)
Quarter: 2017Q4

REPORT INFORMATION
  Report Type: Spontaneous
  Country: ES (occurrence: ES)
  Receive Date: 20171016
  Receipt Date: 20171023
  Transmission Date: 20180321
  Serious: Yes (Other)
  Sender: FDA-Public Use
  Company Number: ES-MYLANLABS-2017M1063804

PATIENT
  Age: 4 Year

DRUGS (1)
  1. TRIAMCINOLONE [Suspect]
     Active Substance: TRIAMCINOLONE
     Indication: EYE DISORDER
     Route: 047

REACTIONS (2)
  - Eye haemorrhage [Unknown]
  - Retinal oedema [Recovered/Resolved]
